FAERS Safety Report 10405719 (Version 2)
Quarter: 2015Q2

REPORT INFORMATION
  Report Type: Spontaneous
  Country: US (occurrence: None)
  Receive Date: 20140821
  Receipt Date: 20150506
  Transmission Date: 20150821
  Serious: Yes (Other)
  Sender: FDA-Public Use
  Company Number: ADR-2014-01467

PATIENT
  Age: 55 Year
  Sex: Female

DRUGS (2)
  1. MORPHINE (INTRATHECAL) [Suspect]
     Active Substance: MORPHINE
     Indication: PAIN
  2. BACLOFEN INTRATHECAL [Suspect]
     Active Substance: BACLOFEN
     Indication: PAIN

REACTIONS (7)
  - Myocardial infarction [None]
  - Implant site haemorrhage [None]
  - Pulmonary embolism [None]
  - Apparent death [None]
  - Implant site bruising [None]
  - Intracardiac thrombus [None]
  - Implant site hypoaesthesia [None]
